FAERS Safety Report 5874011-3 (Version None)
Quarter: 2008Q3

REPORT INFORMATION
  Report Type: 
  Country: None (occurrence: None)
  Receive Date: 20080908
  Receipt Date: 20080825
  Transmission Date: 20090109
  Serious: Yes (Other)
  Sender: FDA-Public Use
  Company Number: US-ELI_LILLY_AND_COMPANY-US200808005163

PATIENT
  Age: 81 Year
  Sex: Male

DRUGS (4)
  1. CYMBALTA [Suspect]
     Indication: BACK PAIN
     Dosage: 60 MG, UNK
     Dates: start: 20080801
  2. KEPPRA [Concomitant]
     Indication: CONVULSION
  3. INSULIN [Concomitant]
     Indication: DIABETES MELLITUS
  4. ACTONEL [Concomitant]
     Indication: OSTEOPOROSIS

REACTIONS (5)
  - BLOOD GLUCOSE INCREASED [None]
  - FATIGUE [None]
  - INSOMNIA [None]
  - LOSS OF CONSCIOUSNESS [None]
  - MALAISE [None]
